FAERS Safety Report 6064055-3 (Version None)
Quarter: 2009Q1

REPORT INFORMATION
  Report Type: 
  Country: None (occurrence: None)
  Receive Date: 20090204
  Receipt Date: 20090126
  Transmission Date: 20090719
  Serious: Yes (Hospitalization)
  Sender: FDA-Public Use
  Company Number: JP-ASTRAZENECA-2008AP09809

PATIENT
  Age: 920 Month
  Sex: Female

DRUGS (15)
  1. SEROQUEL [Suspect]
     Indication: BIPOLAR I DISORDER
     Route: 048
     Dates: start: 20060120, end: 20060326
  2. SEROQUEL [Suspect]
     Route: 048
     Dates: start: 20060327, end: 20081103
  3. SEROQUEL [Suspect]
     Route: 048
     Dates: start: 20061104, end: 20070202
  4. SEROQUEL [Suspect]
     Route: 048
     Dates: start: 20070203, end: 20070330
  5. SEROQUEL [Suspect]
     Route: 048
     Dates: start: 20070331, end: 20080704
  6. SEROQUEL [Suspect]
     Route: 048
     Dates: start: 20080705, end: 20081114
  7. SEROQUEL [Suspect]
     Route: 048
     Dates: start: 20081115, end: 20090109
  8. SEROQUEL [Suspect]
     Route: 048
     Dates: start: 20090110
  9. GRAMALIL [Suspect]
     Indication: DYSKINESIA
     Route: 048
     Dates: start: 20070820
  10. DEPAKENE [Concomitant]
     Route: 048
     Dates: start: 20060120
  11. SOLANAX [Concomitant]
     Route: 048
     Dates: start: 20070820
  12. HALCION [Concomitant]
     Route: 048
     Dates: start: 20060120
  13. LORAMET [Concomitant]
     Route: 048
  14. FLUITRAN [Concomitant]
     Route: 048
     Dates: end: 20081208
  15. OMEPRAZOLE [Concomitant]
     Route: 048

REACTIONS (1)
  - OEDEMA [None]
